FAERS Safety Report 10018943 (Version 2)
Quarter: 2014Q2

REPORT INFORMATION
  Report Type: Spontaneous
  Country: US (occurrence: US)
  Receive Date: 20140318
  Receipt Date: 20140513
  Transmission Date: 20141212
  Serious: Yes (Hospitalization)
  Sender: FDA-Public Use
  Company Number: US-GLAXOSMITHKLINE-A1065217A

PATIENT
  Age: 55 Year
  Sex: Female

DRUGS (13)
  1. ADVAIR [Suspect]
     Indication: CHRONIC OBSTRUCTIVE PULMONARY DISEASE
     Dosage: 1PUFF TWICE PER DAY
     Route: 055
  2. CYMBALTA [Concomitant]
  3. BLOOD PRESSURE MEDICATION [Concomitant]
  4. INHALER [Concomitant]
  5. LISINOPRIL [Concomitant]
  6. NORVASC [Concomitant]
  7. VITAMIN A [Concomitant]
  8. VITAMIN D [Concomitant]
  9. ACIPHEX [Concomitant]
  10. POTASSIUM [Concomitant]
  11. METFORMIN [Concomitant]
  12. KLONOPIN [Concomitant]
  13. OXYGEN [Concomitant]

REACTIONS (11)
  - Type 2 diabetes mellitus [Unknown]
  - Patella fracture [Unknown]
  - Hyperlipidaemia [Unknown]
  - Depression [Unknown]
  - Insomnia [Unknown]
  - Gastrooesophageal reflux disease [Unknown]
  - Hypertension [Unknown]
  - Cardiac murmur [Unknown]
  - Malaise [Recovered/Resolved]
  - Dyspnoea [Recovered/Resolved]
  - Asthma [Recovered/Resolved]
